FAERS Safety Report 17554783 (Version 1)
Quarter: 2020Q1

REPORT INFORMATION
  Report Type: Spontaneous
  Country: US (occurrence: US)
  Receive Date: 20200318
  Receipt Date: 20200318
  Transmission Date: 20200409
  Serious: Yes (Disabling)
  Sender: FDA-Public Use
  Company Number: US-BRISTOL-MYERS SQUIBB COMPANY-BMS-2020-022068

PATIENT
  Sex: Female
  Weight: 72.57 kg

DRUGS (1)
  1. ELIQUIS [Suspect]
     Active Substance: APIXABAN
     Indication: CEREBROVASCULAR ACCIDENT PROPHYLAXIS
     Dosage: UNK UNK, BID
     Route: 048
     Dates: start: 201911

REACTIONS (4)
  - Hypoaesthesia [Unknown]
  - Muscle spasms [Unknown]
  - Visual impairment [Unknown]
  - Osteoarthritis [Unknown]
